FAERS Safety Report 9773173 (Version 1)
Quarter: 2013Q4

REPORT INFORMATION
  Report Type: Spontaneous
  Country: GB (occurrence: GB)
  Receive Date: 20131219
  Receipt Date: 20131219
  Transmission Date: 20140711
  Serious: Yes (Hospitalization)
  Sender: FDA-Public Use
  Company Number: GB-TEVA-450084ISR

PATIENT
  Age: 66 Year
  Sex: Female

DRUGS (13)
  1. TRIMETHOPRIM [Suspect]
     Indication: URINARY TRACT INFECTION
     Route: 048
  2. METHOTREXATE [Interacting]
     Dosage: 20MG WEEKLY
     Route: 058
     Dates: end: 20130917
  3. SULPHASALAZINE [Suspect]
     Dosage: 4000 MILLIGRAM DAILY; 1000MG TWICE DAILY
     Route: 048
     Dates: end: 20130917
  4. DIFFLAM [Concomitant]
     Indication: PAIN
     Dosage: WHEN REQUIRED
  5. AMITRIPTYLINE HYDROCHLORIDE [Concomitant]
     Dosage: 100 MILLIGRAM DAILY; ONE AT NIGHT
     Route: 048
  6. BUPRENORPHINE [Concomitant]
  7. BUPRENORPHINE [Concomitant]
  8. FERROUS SULPHATE [Concomitant]
     Dosage: 400 MILLIGRAM DAILY; 200MG TWICE DAILY
     Route: 048
  9. FOLIC ACID [Concomitant]
     Dosage: 10 MILLIGRAM DAILY; 10MG TABLET IN THE MORNING
     Route: 048
  10. GABAPENTIN [Concomitant]
     Dosage: 300MG CAPSULE IN THE MORNING
     Route: 048
  11. GABAPENTIN [Concomitant]
     Dosage: 600MG THREE TIMES DAILY
     Route: 048
  12. LANSOPRAZOLE [Concomitant]
     Dosage: 30 MILLIGRAM DAILY; LANSOPRAZOLE 30MG CAPSULES IN THE MORNING
     Route: 048
  13. PREDNISOLONE [Concomitant]
     Dosage: 5 MILLIGRAM DAILY; 5MG IN THE MORNING
     Route: 048

REACTIONS (2)
  - Pancytopenia [Recovered/Resolved]
  - Drug interaction [Recovered/Resolved]
